FAERS Safety Report 13048929 (Version 2)
Quarter: 2017Q1

REPORT INFORMATION
  Report Type: Spontaneous
  Country: IT (occurrence: IT)
  Receive Date: 20161221
  Receipt Date: 20170113
  Transmission Date: 20170428
  Serious: Yes (Hospitalization)
  Sender: FDA-Public Use
  Company Number: IT-TEVA-720418ACC

PATIENT
  Age: 51 Year
  Sex: Female

DRUGS (4)
  1. URSODEOXYCHOLIC ACID [Suspect]
     Active Substance: URSODIOL
     Dosage: 10 MG/KG DAILY;
     Dates: start: 201204
  2. URSODEOXYCHOLIC ACID [Suspect]
     Active Substance: URSODIOL
     Dosage: 15 MG/KG DAILY;
  3. METHOTREXATE. [Suspect]
     Active Substance: METHOTREXATE
     Route: 048
     Dates: start: 201205
  4. METHYLPREDNISOLONE. [Suspect]
     Active Substance: METHYLPREDNISOLONE
     Dosage: 16 MILLIGRAM DAILY; TAPERED TO 4 MG/DAY
     Dates: start: 201111

REACTIONS (4)
  - Psoriasis [Recovered/Resolved]
  - Biliary cirrhosis primary [Recovering/Resolving]
  - Cholangitis sclerosing [Recovering/Resolving]
  - Arthritis [Recovered/Resolved]
